FAERS Safety Report 7299194-2 (Version None)
Quarter: 2011Q1

REPORT INFORMATION
  Report Type: 
  Country: None (occurrence: None)
  Receive Date: 20110217
  Receipt Date: 20110209
  Transmission Date: 20110831
  Serious: Yes (Other)
  Sender: FDA-Public Use
  Company Number: US-PFIZER INC-2010054283

PATIENT
  Sex: Female

DRUGS (5)
  1. LAMICTAL [Concomitant]
     Dosage: UNK
  2. ADDERALL 10 [Concomitant]
     Dosage: UNK
  3. ZOLOFT [Suspect]
     Indication: DEPRESSION
     Dosage: 200 MG, DAILY
     Dates: end: 20100101
  4. ABILIFY [Concomitant]
     Dosage: UNK
  5. PRISTIQ [Suspect]
     Indication: DEPRESSION
     Dosage: 50 MG, DAILY
     Dates: start: 20100401

REACTIONS (2)
  - STAPHYLOCOCCAL INFECTION [None]
  - DRUG INEFFECTIVE [None]
